FAERS Safety Report 10250835 (Version 2)
Quarter: 2014Q2

REPORT INFORMATION
  Report Type: Spontaneous
  Country: US (occurrence: US)
  Receive Date: 20140620
  Receipt Date: 20140620
  Transmission Date: 20141212
  Serious: Yes (Hospitalization)
  Sender: FDA-Public Use
  Company Number: US-009507513-2010SP053378

PATIENT
  Sex: Female
  Weight: 56.7 kg

DRUGS (2)
  1. NUVARING [Suspect]
     Indication: CONTRACEPTION
     Dosage: 1 DF, QM
     Route: 067
     Dates: start: 200708, end: 200902
  2. MIDODRINE HYDROCHLORIDE [Concomitant]
     Indication: TACHYCARDIA
     Dosage: 5 MG, TID
     Dates: start: 2006

REACTIONS (10)
  - Deep vein thrombosis [Unknown]
  - Dehydration [Unknown]
  - Gastrointestinal disorder [Unknown]
  - Depression [Unknown]
  - Thoracic outlet syndrome [Unknown]
  - Urinary tract infection [Unknown]
  - Tonsillectomy [Unknown]
  - Adenoidectomy [Unknown]
  - Subclavian vein thrombosis [Unknown]
  - Irritable bowel syndrome [Unknown]
